FAERS Safety Report 18853599 (Version 2)
Quarter: 2021Q2

REPORT INFORMATION
  Report Type: Spontaneous
  Country: IN (occurrence: IN)
  Receive Date: 20210205
  Receipt Date: 20210604
  Transmission Date: 20210717
  Serious: Yes (Death, Other)
  Sender: FDA-Public Use
  Company Number: IN-PFIZER INC-2021087232

PATIENT
  Age: 12 Year
  Sex: Male
  Weight: 45 kg

DRUGS (1)
  1. CRIZALK [Suspect]
     Active Substance: CRIZOTINIB
     Indication: ANAPLASTIC LARGE-CELL LYMPHOMA
     Dosage: 250 MG, 2X/DAY
     Route: 048
     Dates: start: 20191019, end: 20210416

REACTIONS (8)
  - Pain [Recovering/Resolving]
  - Pallor [Unknown]
  - Off label use [Unknown]
  - Neoplasm progression [Unknown]
  - Death [Fatal]
  - Pyrexia [Unknown]
  - Joint swelling [Recovering/Resolving]
  - Gait inability [Unknown]

NARRATIVE: CASE EVENT DATE: 202003
